FAERS Safety Report 6556449-4 (Version None)
Quarter: 2010Q1

REPORT INFORMATION
  Report Type: 
  Country: None (occurrence: None)
  Receive Date: 20100128
  Receipt Date: 20100125
  Transmission Date: 20100710
  Serious: Yes (Hospitalization)
  Sender: FDA-Public Use
  Company Number: D0066222A

PATIENT
  Age: 85 Year
  Sex: Female
  Weight: 70 kg

DRUGS (7)
  1. AMOCLAV [Suspect]
     Indication: ERYSIPELAS
     Dosage: 1000MG TWICE PER DAY
     Route: 048
     Dates: start: 20091207, end: 20091211
  2. AMPICILLIN AND SULBACTAM [Suspect]
     Indication: ERYSIPELAS
     Dosage: 3G PER DAY
     Route: 042
     Dates: start: 20091202, end: 20091206
  3. BELOC ZOK [Concomitant]
     Dosage: 47.5MG TWICE PER DAY
     Route: 048
     Dates: start: 20060101
  4. RAMIPRIL [Concomitant]
     Dosage: 2.5MG PER DAY
     Route: 048
     Dates: start: 20060101
  5. STANGYL [Concomitant]
     Indication: DEPRESSION
     Dosage: 25MG PER DAY
     Route: 048
     Dates: start: 20060101
  6. SIMVASTATIN [Concomitant]
     Indication: LIPID METABOLISM DISORDER
     Dosage: 40MG PER DAY
     Route: 048
     Dates: start: 20060101
  7. ASPIRIN [Concomitant]
     Dosage: 100MG PER DAY
     Route: 048
     Dates: start: 20060101

REACTIONS (6)
  - ABDOMINAL PAIN [None]
  - BLOOD PRESSURE IMMEASURABLE [None]
  - CIRCULATORY COLLAPSE [None]
  - DEHYDRATION [None]
  - DIARRHOEA [None]
  - HAEMATOCHEZIA [None]
